FAERS Safety Report 13566205 (Version 1)
Quarter: 2017Q2

REPORT INFORMATION
  Report Type: Spontaneous
  Country: US (occurrence: US)
  Receive Date: 20170519
  Receipt Date: 20170519
  Transmission Date: 20170830
  Serious: Yes (Hospitalization)
  Sender: FDA-Public Use
  Company Number: None

PATIENT
  Age: 75 Year
  Sex: Female

DRUGS (14)
  1. OCTREOTIDE. [Suspect]
     Active Substance: OCTREOTIDE
     Indication: CARCINOID TUMOUR
     Route: 058
     Dates: start: 20131205
  2. TOPROL XL [Concomitant]
     Active Substance: METOPROLOL SUCCINATE
  3. DICYCLOMINE [Concomitant]
     Active Substance: DICYCLOMINE HYDROCHLORIDE
  4. LEVOTHYROXINE. [Concomitant]
     Active Substance: LEVOTHYROXINE
  5. NORTRIPYLINE [Concomitant]
  6. LANSOPRAZOLE. [Concomitant]
     Active Substance: LANSOPRAZOLE
  7. OMEPRAZOLE. [Concomitant]
     Active Substance: OMEPRAZOLE
  8. TRAMADOL. [Concomitant]
     Active Substance: TRAMADOL
  9. TAMSULOSIN [Concomitant]
     Active Substance: TAMSULOSIN
  10. POTASSIUM [Concomitant]
     Active Substance: POTASSIUM
  11. METRONIDAZOLE. [Concomitant]
     Active Substance: METRONIDAZOLE
  12. ZENPEP [Suspect]
     Active Substance: PANCRELIPASE AMYLASE\PANCRELIPASE LIPASE\PANCRELIPASE PROTEASE
  13. SINGULAIR [Concomitant]
     Active Substance: MONTELUKAST SODIUM
  14. METOCLOPRAMIDE. [Concomitant]
     Active Substance: METOCLOPRAMIDE

REACTIONS (2)
  - Nephrolithiasis [None]
  - Volvulus [None]

NARRATIVE: CASE EVENT DATE: 201704
